FAERS Safety Report 7096012-2 (Version None)
Quarter: 2010Q4

REPORT INFORMATION
  Report Type: 
  Country: None (occurrence: None)
  Receive Date: 20101111
  Receipt Date: 20090429
  Transmission Date: 20110411
  Serious: No
  Sender: FDA-Public Use
  Company Number: US-KINGPHARMUSA00001-K200900515

PATIENT
  Sex: Male
  Weight: 88.435 kg

DRUGS (1)
  1. SILVADENE [Suspect]
     Indication: THERMAL BURN
     Dosage: UNK, BID
     Route: 061
     Dates: start: 20090417

REACTIONS (1)
  - DRUG EFFECT DECREASED [None]
